FAERS Safety Report 11137627 (Version 1)
Quarter: 2015Q2

REPORT INFORMATION
  Report Type: Other
  Country: GB (occurrence: GB)
  Receive Date: 20150526
  Receipt Date: 20150526
  Transmission Date: 20150821
  Serious: Yes (Other)
  Sender: FDA-Public Use
  Company Number: GB-MYLANLABS-2015M1016185

PATIENT

DRUGS (5)
  1. CISPLATIN. [Suspect]
     Active Substance: CISPLATIN
     Indication: GASTROOESOPHAGEAL CANCER
     Dosage: 112 MG (LAST ADMINSTARTION: 13 MAY 2011)
     Route: 042
     Dates: start: 20101223
  2. XELODA [Suspect]
     Active Substance: CAPECITABINE
     Dosage: COMPLETELY STOPPED.
     Route: 048
     Dates: start: 20110524, end: 20110525
  3. XELODA [Suspect]
     Active Substance: CAPECITABINE
     Indication: GASTROOESOPHAGEAL CANCER
     Dosage: 1000 MG (LAST ADMINSTARTION 25 MAY 2011)
     Route: 048
     Dates: start: 20101223, end: 20110523
  4. EPIRUBICIN [Suspect]
     Active Substance: EPIRUBICIN
     Indication: GASTROOESOPHAGEAL CANCER
     Dosage: 96 MG (LAST ADMINSTARTION: 13 MAY 2011)
     Route: 042
     Dates: start: 20101223
  5. AVASTIN [Suspect]
     Active Substance: BEVACIZUMAB
     Indication: GASTROOESOPHAGEAL CANCER
     Dosage: 512.5 MG (LAST DATE OF ADMINSTRATION: 13 MAY 2011)
     Route: 042

REACTIONS (1)
  - Chest pain [Recovered/Resolved]

NARRATIVE: CASE EVENT DATE: 20110522
